FAERS Safety Report 5768593-X (Version None)
Quarter: 2008Q2

REPORT INFORMATION
  Report Type: 
  Country: None (occurrence: None)
  Receive Date: 20080610
  Receipt Date: 20080529
  Transmission Date: 20081010
  Serious: Yes (Hospitalization)
  Sender: FDA-Public Use
  Company Number: CIP08000985

PATIENT
  Age: 89 Year
  Sex: Female

DRUGS (5)
  1. ACTONEL [Suspect]
     Indication: OSTEOPOROSIS
     Dosage: 2.5 MG, DAILY, ORAL
     Route: 048
     Dates: start: 20080327, end: 20080508
  2. LANSOPRAZOLE [Suspect]
     Indication: GASTRIC ULCER
     Dosage: 15 MG, ORAL
     Route: 048
     Dates: start: 20080319, end: 20080508
  3. PREDONINE	/00016201/ (PREDNISOLONE) [Concomitant]
  4. SELBEX (TEPRENONE) [Concomitant]
  5. MAGLAX (MAGNESIUM OXIDE) [Concomitant]

REACTIONS (2)
  - AGRANULOCYTOSIS [None]
  - BACK PAIN [None]
